FAERS Safety Report 8972426 (Version 1)
Quarter: 2012Q4

REPORT INFORMATION
  Report Type: 
  Country: US (occurrence: US)
  Receive Date: 20121219
  Receipt Date: 20121219
  Transmission Date: 20130627
  Serious: Yes (Other)
  Sender: FDA-Public Use
  Company Number: US-ROXANE LABORATORIES, INC.-2012-RO-02589RO

PATIENT
  Age: 27 Year
  Sex: Female

DRUGS (5)
  1. PREDNISONE [Suspect]
     Indication: AUTOIMMUNE HEPATITIS
  2. AZATHIOPRINE [Suspect]
     Indication: AUTOIMMUNE HEPATITIS
  3. AZATHIOPRINE [Suspect]
  4. AZATHIOPRINE [Suspect]
  5. BUDESONIDE [Suspect]
     Indication: AUTOIMMUNE HEPATITIS
     Dosage: 9 mg

REACTIONS (1)
  - Hepatotoxicity [Recovered/Resolved]
